FAERS Safety Report 7809006-3 (Version None)
Quarter: 2011Q4

REPORT INFORMATION
  Report Type: 
  Country: None (occurrence: None)
  Receive Date: 20111012
  Receipt Date: 20111012
  Transmission Date: 20120403
  Serious: No
  Sender: FDA-Public Use
  Company Number: None

PATIENT
  Age: 64 Year
  Sex: Female
  Weight: 90.718 kg

DRUGS (1)
  1. COPAXONE [Suspect]
     Indication: MULTIPLE SCLEROSIS
     Dosage: 1 SYRINGE
     Route: 058
     Dates: start: 20110917, end: 20110924

REACTIONS (4)
  - DYSPNOEA [None]
  - DIARRHOEA [None]
  - URTICARIA [None]
  - VOMITING [None]
